FAERS Safety Report 4657966-4 (Version None)
Quarter: 2005Q2

REPORT INFORMATION
  Report Type: 
  Country: None (occurrence: None)
  Receive Date: 20050510
  Receipt Date: 20040924
  Transmission Date: 20051028
  Serious: Yes (Death, Hospitalization)
  Sender: FDA-Public Use
  Company Number: SE-NOVOPROD-239580

PATIENT
  Age: 61 Year
  Sex: Male

DRUGS (2)
  1. NOVONORM [Suspect]
     Indication: INSULIN-REQUIRING TYPE II DIABETES MELLITUS
     Dates: start: 20040331, end: 20040415
  2. INSULATARD [Concomitant]
     Indication: INSULIN-REQUIRING TYPE II DIABETES MELLITUS
     Dates: start: 20040402, end: 20040415

REACTIONS (9)
  - BLOOD GLUCOSE DECREASED [None]
  - BLOOD PRESSURE DECREASED [None]
  - CONFUSIONAL STATE [None]
  - GENERAL PHYSICAL HEALTH DETERIORATION [None]
  - HAEMOGLOBIN DECREASED [None]
  - HEPATITIS ALCOHOLIC [None]
  - HEPATITIS TOXIC [None]
  - HYPOGLYCAEMIA [None]
  - WEIGHT INCREASED [None]
